FAERS Safety Report 6275804-3 (Version None)
Quarter: 2009Q3

REPORT INFORMATION
  Report Type: 
  Country: None (occurrence: None)
  Receive Date: 20090717
  Receipt Date: 20090709
  Transmission Date: 20100115
  Serious: Yes (Life-Threatening, Hospitalization)
  Sender: FDA-Public Use
  Company Number: ADR8562009 (MHRA ADR NO.: ADR  20452689-001)

PATIENT
  Age: 54 Year
  Sex: Female

DRUGS (13)
  1. RAMIPRIL [Suspect]
     Indication: MYOCARDIAL INFARCTION
     Dosage: 10 MG ORAL
     Route: 048
     Dates: start: 20010101, end: 20080305
  2. ASPIRIN [Concomitant]
  3. BISOPROLOL [Concomitant]
  4. CLOPIDOGREL [Concomitant]
  5. FENOFIBRATE [Concomitant]
  6. GLICLAZIDE [Concomitant]
  7. ISOSORBIDE DINITRATE [Concomitant]
  8. LANSOPRAZOLE [Concomitant]
  9. METFORMIN HCL [Concomitant]
  10. NICORANDIL [Concomitant]
  11. NICOTINIC ACID [Concomitant]
  12. NOVOMIX (INSULIN ASPART) [Concomitant]
  13. ROSUVASTATIN CALCIUM [Concomitant]

REACTIONS (4)
  - DIARRHOEA [None]
  - FATIGUE [None]
  - RENAL FAILURE ACUTE [None]
  - VOMITING [None]
